FAERS Safety Report 22539304 (Version 2)
Quarter: 2023Q2

REPORT INFORMATION
  Report Type: Spontaneous
  Country: US (occurrence: US)
  Receive Date: 20230609
  Receipt Date: 20230613
  Transmission Date: 20230721
  Serious: No
  Sender: FDA-Public Use
  Company Number: US-PFIZER INC-PV202300101160

PATIENT
  Age: 11 Year
  Sex: Female

DRUGS (1)
  1. GENOTROPIN [Suspect]
     Active Substance: SOMATROPIN
     Dosage: 0.7 MG, DAILY

REACTIONS (6)
  - Poor quality device used [Unknown]
  - Device defective [Unknown]
  - Drug dose omission by device [Unknown]
  - Device power source issue [Unknown]
  - Device information output issue [Unknown]
  - Device use issue [Unknown]
